FAERS Safety Report 8110691-X (Version None)
Quarter: 2012Q1

REPORT INFORMATION
  Report Type: 
  Country: None (occurrence: None)
  Receive Date: 20120203
  Receipt Date: 20120126
  Transmission Date: 20120608
  Serious: Yes (Hospitalization, Other)
  Sender: FDA-Public Use
  Company Number: US-BAYER-2011-018437

PATIENT
  Age: 31 Year
  Sex: Female
  Weight: 102.4 kg

DRUGS (5)
  1. HYDROCORTISONE [Concomitant]
     Dosage: CREAM
     Route: 061
  2. YASMIN [Suspect]
     Indication: ORAL CONTRACEPTION
     Dosage: UNK
     Dates: start: 20071101, end: 20080101
  3. YAZ [Suspect]
     Indication: ORAL CONTRACEPTION
     Dosage: UNK
     Dates: start: 20090201, end: 20090422
  4. METFORMIN HCL [Concomitant]
     Dosage: 500 MG, UNK
  5. BENADRYL [Concomitant]

REACTIONS (5)
  - INJURY [None]
  - SWELLING [None]
  - DEEP VEIN THROMBOSIS [None]
  - PAIN [None]
  - EMOTIONAL DISTRESS [None]
